FAERS Safety Report 5121322-5 (Version None)
Quarter: 2006Q4

REPORT INFORMATION
  Report Type: 
  Country: None (occurrence: None)
  Receive Date: 20061002
  Receipt Date: 20060919
  Transmission Date: 20070319
  Serious: Yes (Other)
  Sender: FDA-Public Use
  Company Number: 2006097055

PATIENT
  Age: 9 Year
  Sex: Male
  Weight: 31 kg

DRUGS (2)
  1. ZARONTIN SYRUP [Suspect]
     Dosage: 6  ML (3 ML, 2 IN 1 D)
     Dates: start: 20060301
  2. VALPROIC ACID [Concomitant]

REACTIONS (4)
  - EPILEPSY [None]
  - PHARMACEUTICAL PRODUCT COMPLAINT [None]
  - TOOTH DISCOLOURATION [None]
  - UNDERDOSE [None]
